FAERS Safety Report 8480384 (Version 6)
Quarter: 2012Q4

REPORT INFORMATION
  Report Type: 
  Country: NO (occurrence: NO)
  Receive Date: 20120328
  Receipt Date: 20120926
  Transmission Date: 20130627
  Serious: Yes (Life-Threatening, Hospitalization, Other)
  Sender: FDA-Public Use
  Company Number: NO-CELGENEUS-122-20785-12031537

PATIENT
  Age: 14 Year
  Sex: Male
  Weight: 75 kg

DRUGS (11)
  1. THALIDOMIDE [Suspect]
     Indication: MEDULLOBLASTOMA
     Dosage: 200 Milligram
     Route: 048
  2. THALIDOMIDE [Suspect]
     Dosage: 50 Milligram
     Route: 048
  3. CYTARABINE [Suspect]
     Indication: MEDULLOBLASTOMA
     Route: 037
  4. CYTARABINE [Suspect]
     Route: 037
  5. CELECOXIB [Suspect]
     Indication: MEDULLOBLASTOMA
     Dosage: 800 Milligram
     Route: 048
  6. CELECOXIB [Suspect]
     Dosage: 100 Milligram
     Route: 048
  7. ETOPOSIDE [Suspect]
     Indication: MEDULLOBLASTOMA
     Dosage: 100 Milligram
     Route: 048
  8. ETOPOSIDE [Suspect]
     Dosage: 12.5 Milligram
     Route: 048
  9. PREDNISOLONE SUCCINATE [Concomitant]
     Indication: PROPHYLAXIS
     Dosage: 20 Milligram
     Route: 065
  10. DEXAMETHASONE [Concomitant]
     Indication: PROPHYLAXIS
     Dosage: 8 Milligram
     Route: 048
  11. DEXAMETHASONE [Concomitant]
     Route: 048

REACTIONS (10)
  - Arachnoiditis [Recovering/Resolving]
  - Mucosal inflammation [Recovered/Resolved]
  - Fall [Unknown]
  - Neutropenia [Recovered/Resolved]
  - Sinusitis [Recovered/Resolved]
  - Pyrexia [Recovered/Resolved]
  - Somnolence [Unknown]
  - C-reactive protein increased [Unknown]
  - Deafness [Recovering/Resolving]
  - Fatigue [Recovered/Resolved]
